FAERS Safety Report 18552665 (Version 1)
Quarter: 2020Q4

REPORT INFORMATION
  Report Type: Spontaneous
  Country: US (occurrence: US)
  Receive Date: 20201127
  Receipt Date: 20201127
  Transmission Date: 20210114
  Serious: No
  Sender: FDA-Public Use
  Company Number: US-CADILA HEALTHCARE LIMITED-US-ZYDUS-057756

PATIENT
  Age: 57 Year
  Sex: Male

DRUGS (1)
  1. VARDENAFIL [Suspect]
     Active Substance: VARDENAFIL HYDROCHLORIDE
     Indication: ERECTILE DYSFUNCTION
     Dosage: 20 MILLIGRAM, AS NEEDED
     Route: 048
     Dates: start: 202009, end: 2020

REACTIONS (2)
  - Headache [Recovered/Resolved]
  - Flushing [Recovered/Resolved]

NARRATIVE: CASE EVENT DATE: 202009
